FAERS Safety Report 6377139-7 (Version None)
Quarter: 2009Q3

REPORT INFORMATION
  Report Type: 
  Country: None (occurrence: None)
  Receive Date: 20090925
  Receipt Date: 20090915
  Transmission Date: 20100115
  Serious: Yes (Hospitalization, Other)
  Sender: FDA-Public Use
  Company Number: CZ-PFIZER INC-2009269444

PATIENT
  Age: 32 Year

DRUGS (15)
  1. CLONAZEPAM [Suspect]
     Dosage: 8 MG DAILY
  2. CLONAZEPAM [Suspect]
     Dosage: 4 MG DAILY
  3. CLONAZEPAM [Suspect]
     Dosage: 0.5 MG DAILY
  4. MIRTAZAPINE [Suspect]
     Dosage: 45 MG DAILY
  5. MIRTAZAPINE [Suspect]
     Dosage: 15 MG DAILY
  6. PAROXETINE [Suspect]
     Dosage: 60 MG DAILY
  7. PAROXETINE [Suspect]
     Dosage: 20 MG DAILY
  8. PIRACETAM [Suspect]
     Dosage: 2400 MG DAILY
  9. ZIPRASIDONE HCL [Suspect]
     Dosage: 40 MG DAILY
  10. FLUOXETINE [Suspect]
  11. DIBENZEPIN [Suspect]
     Dosage: 720 MG DAILY
  12. MILNACIPRAN [Suspect]
     Dosage: 50 MG DAILY
  13. VENLAFAXINE [Suspect]
     Dosage: 225 MG DAILY
  14. TIAPRIDE [Suspect]
     Indication: WITHDRAWAL SYNDROME
     Dosage: 150 MG DAILY
  15. RISPERIDONE [Suspect]
     Dosage: 1 MG DAILY

REACTIONS (5)
  - DEPERSONALISATION [None]
  - DEREALISATION [None]
  - DRUG DEPENDENCE [None]
  - DRUG INEFFECTIVE [None]
  - DRUG WITHDRAWAL SYNDROME [None]
